FAERS Safety Report 8561238-5 (Version None)
Quarter: 2012Q3

REPORT INFORMATION
  Report Type: 
  Country: None (occurrence: None)
  Receive Date: 20120802
  Receipt Date: 20120724
  Transmission Date: 20120928
  Serious: Yes (Hospitalization)
  Sender: FDA-Public Use
  Company Number: US-ASTRAZENECA-2012SE52431

PATIENT
  Age: 73 Year
  Sex: Female
  Weight: 69.4 kg

DRUGS (5)
  1. SYMBICORT [Suspect]
     Route: 055
  2. BLOOD PRESSURE PILL [Concomitant]
  3. DIABETES PILL [Concomitant]
  4. CARDIO DRUGS [Concomitant]
  5. SPIRIVA [Suspect]
     Route: 065

REACTIONS (6)
  - BLOOD IRON DECREASED [None]
  - DIABETES MELLITUS [None]
  - HYPOTENSION [None]
  - BLOOD BLISTER [None]
  - ANAEMIA [None]
  - TOOTH LOSS [None]
